FAERS Safety Report 18086394 (Version 1)
Quarter: 2020Q3

REPORT INFORMATION
  Report Type: Spontaneous
  Country: ZA (occurrence: ZA)
  Receive Date: 20200729
  Receipt Date: 20200729
  Transmission Date: 20201103
  Serious: Yes (Other)
  Sender: FDA-Public Use
  Company Number: ZA-SA-2017SA226525

PATIENT

DRUGS (1)
  1. TERIFLUNOMIDE. [Suspect]
     Active Substance: TERIFLUNOMIDE
     Indication: RELAPSING-REMITTING MULTIPLE SCLEROSIS
     Dosage: 14 MG, QD (1 TABLET DAILY)
     Route: 048

REACTIONS (9)
  - Hypertonia [Unknown]
  - Optic atrophy [Unknown]
  - Visual impairment [Not Recovered/Not Resolved]
  - Speech disorder [Not Recovered/Not Resolved]
  - Pupillary reflex impaired [Unknown]
  - Dysarthria [Unknown]
  - Cerebellar ataxia [Unknown]
  - Dysdiadochokinesis [Unknown]
  - Visual acuity reduced [Unknown]
